FAERS Safety Report 7227843-3 (Version None)
Quarter: 2011Q1

REPORT INFORMATION
  Report Type: 
  Country: None (occurrence: None)
  Receive Date: 20110114
  Receipt Date: 20101213
  Transmission Date: 20110831
  Serious: No
  Sender: FDA-Public Use
  Company Number: US-JNJFOC-20101001765

PATIENT
  Sex: Female

DRUGS (19)
  1. NEURONTIN [Concomitant]
     Indication: ANXIETY
  2. ALBUTEROL [Concomitant]
  3. FENTANYL-100 [Concomitant]
  4. NORMAL SALINE [Concomitant]
     Route: 045
  5. PROPRANOLOL [Concomitant]
     Indication: ANXIETY
  6. VITAMIN D [Concomitant]
  7. INVEGA SUSTENNA [Suspect]
     Indication: BIPOLAR I DISORDER
     Route: 030
  8. TOPAMAX [Concomitant]
     Indication: AFFECTIVE DISORDER
  9. CETRIZINE [Concomitant]
  10. SINGULAIR [Concomitant]
  11. AMBIEN [Concomitant]
     Indication: SLEEP DISORDER
  12. CELEBREX [Concomitant]
  13. ADVAIR DISKUS 100/50 [Concomitant]
  14. ASPIRIN [Concomitant]
  15. NASONEX [Concomitant]
  16. PROAIR HFA [Concomitant]
  17. XANAX [Concomitant]
  18. CYCLOBENZAPRINE [Concomitant]
  19. PRAVASTATIN [Concomitant]

REACTIONS (1)
  - INJECTION SITE MASS [None]
